FAERS Safety Report 9912478 (Version 1)
Quarter: 2014Q1

REPORT INFORMATION
  Report Type: Spontaneous
  Country: US (occurrence: US)
  Receive Date: 20140220
  Receipt Date: 20140220
  Transmission Date: 20141002
  Serious: Yes (Other)
  Sender: FDA-Public Use
  Company Number: US-SHIRE-ALL1-2014-01140

PATIENT
  Sex: Male

DRUGS (5)
  1. LIALDA [Suspect]
     Indication: COLITIS ULCERATIVE
     Dosage: UNK UNK, UNKNOWN
     Route: 048
  2. SIMPONI [Suspect]
     Indication: COLITIS ULCERATIVE
     Dosage: UNK, UNKNOWN
     Route: 058
     Dates: start: 201401
  3. PREDNISONE [Suspect]
     Indication: COLITIS ULCERATIVE
     Dosage: UNK, UNKNOWN
     Route: 065
     Dates: end: 20140117
  4. PREDNISONE [Suspect]
     Dosage: 20 MG, 1X/DAY:QD
     Route: 065
     Dates: start: 20140122, end: 20140122
  5. PREDNISONE [Suspect]
     Dosage: 40 MG, 1X/DAY:QD(IN THE MORNING)
     Route: 065
     Dates: start: 20140123

REACTIONS (3)
  - Intestinal haemorrhage [Recovering/Resolving]
  - Frequent bowel movements [Recovering/Resolving]
  - Acne [Recovering/Resolving]
